FAERS Safety Report 13664363 (Version 2)
Quarter: 2018Q2

REPORT INFORMATION
  Report Type: Spontaneous
  Country: US (occurrence: US)
  Receive Date: 20170619
  Receipt Date: 20180521
  Transmission Date: 20180711
  Serious: Yes (Hospitalization, Other)
  Sender: FDA-Public Use
  Company Number: US-PFIZER INC-2017263604

PATIENT
  Sex: Female

DRUGS (2)
  1. FLEXERIL [Concomitant]
     Active Substance: CYCLOBENZAPRINE HYDROCHLORIDE
     Dosage: UNK
  2. IBUPROFEN. [Suspect]
     Active Substance: IBUPROFEN
     Indication: SCIATICA
     Dosage: 600 MG, UNK

REACTIONS (16)
  - Fatigue [Unknown]
  - Pyrexia [Unknown]
  - Malaise [Unknown]
  - Influenza like illness [Unknown]
  - Drug ineffective [Unknown]
  - Middle insomnia [Unknown]
  - Myalgia [Unknown]
  - Feeling cold [Unknown]
  - Rash [Unknown]
  - Feeding disorder [Unknown]
  - Eye irritation [Unknown]
  - Oral mucosal blistering [Unknown]
  - Conjunctivitis [Unknown]
  - Hand-foot-and-mouth disease [Unknown]
  - Syphilis [Unknown]
  - Stomatitis [Unknown]
